FAERS Safety Report 12549798 (Version 3)
Quarter: 2018Q1

REPORT INFORMATION
  Report Type: Report from Study
  Country: JP (occurrence: JP)
  Receive Date: 20160712
  Receipt Date: 20180111
  Transmission Date: 20180508
  Serious: Yes (Hospitalization, Other)
  Sender: FDA-Public Use
  Company Number: JP-DSJP-DSJ-2016-117947

PATIENT

DRUGS (9)
  1. NICORANDIL [Concomitant]
     Active Substance: NICORANDIL
     Dosage: 15MG/DAY
     Route: 048
     Dates: end: 20160709
  2. AMLODIPINE                         /00972402/ [Concomitant]
     Active Substance: AMLODIPINE BESYLATE
     Dosage: 10MG/DAY
     Route: 048
     Dates: end: 20160524
  3. ENALAPRIL                          /00574902/ [Concomitant]
     Active Substance: ENALAPRIL
     Dosage: 5MG/DAY
     Route: 048
     Dates: end: 20160524
  4. EDOXABAN [Suspect]
     Active Substance: EDOXABAN TOSYLATE
     Indication: ATRIAL FIBRILLATION
     Dosage: 30 MG, QD
     Route: 048
     Dates: start: 20160518, end: 20160523
  5. FUROSEMIDE. [Concomitant]
     Active Substance: FUROSEMIDE
     Dosage: 20MG/DAY
     Route: 048
     Dates: end: 20160709
  6. SPIRONOLACTONE. [Concomitant]
     Active Substance: SPIRONOLACTONE
     Dosage: 25MG/DAY
     Route: 048
     Dates: end: 20160709
  7. BAYASPIRIN [Concomitant]
     Active Substance: ASPIRIN
     Dosage: 100MG/DAY
     Route: 048
     Dates: end: 20160524
  8. ISOSORBIDE MONONITRATE. [Concomitant]
     Active Substance: ISOSORBIDE MONONITRATE
     Dosage: 40MG/DAY
     Route: 048
     Dates: end: 20160709
  9. FLUITRAN [Concomitant]
     Active Substance: TRICHLORMETHIAZIDE
     Dosage: 1MG/DAY
     Route: 048
     Dates: end: 20160709

REACTIONS (3)
  - Cerebral infarction [Recovered/Resolved with Sequelae]
  - Melaena [Recovering/Resolving]
  - Dehydration [Recovered/Resolved with Sequelae]

NARRATIVE: CASE EVENT DATE: 20160518
